FAERS Safety Report 18991558 (Version 1)
Quarter: 2021Q1

REPORT INFORMATION
  Report Type: Spontaneous
  Country: US (occurrence: US)
  Receive Date: 20210225
  Receipt Date: 20210225
  Transmission Date: 20210420
  Serious: No
  Sender: FDA-Public Use
  Company Number: None

PATIENT
  Age: 67 Year
  Sex: Male
  Weight: 85.05 kg

DRUGS (15)
  1. TOUJEO INSULIN [Concomitant]
  2. LIPITOR [Concomitant]
     Active Substance: ATORVASTATIN CALCIUM
  3. FIVBER?CON [Concomitant]
  4. WELLBUTRIN XL [Concomitant]
     Active Substance: BUPROPION HYDROCHLORIDE
  5. CARVIDELOL [Concomitant]
  6. COREG [Concomitant]
     Active Substance: CARVEDILOL
  7. HUMALOG [Concomitant]
     Active Substance: INSULIN LISPRO
  8. ALFUZOSIN [Concomitant]
     Active Substance: ALFUZOSIN
  9. CENTRUM MULTI VITAMINS [Concomitant]
  10. ALLEGRA [Concomitant]
     Active Substance: FEXOFENADINE HYDROCHLORIDE
  11. AMLODOPINE [Concomitant]
     Active Substance: AMLODIPINE BESYLATE
  12. QUINIPRIL [Concomitant]
  13. ZYRTEC [Concomitant]
     Active Substance: CETIRIZINE HYDROCHLORIDE
  14. SYNJARDY [Suspect]
     Active Substance: EMPAGLIFLOZIN\METFORMIN HYDROCHLORIDE
     Indication: TYPE 2 DIABETES MELLITUS
     Dosage: ?          QUANTITY:1 TABLET(S);?
     Route: 048
     Dates: start: 20210223, end: 20210224
  15. PROTONIX [Concomitant]
     Active Substance: PANTOPRAZOLE SODIUM

REACTIONS (2)
  - Therapy cessation [None]
  - Urinary retention [None]

NARRATIVE: CASE EVENT DATE: 20210223
